FAERS Safety Report 4449743-4 (Version None)
Quarter: 2004Q3

REPORT INFORMATION
  Report Type: 
  Country: None (occurrence: None)
  Receive Date: 20040913
  Receipt Date: 20040913
  Transmission Date: 20050211
  Serious: Yes (Hospitalization)
  Sender: FDA-Public Use
  Company Number: None

PATIENT
  Sex: Female
  Weight: 82.5547 kg

DRUGS (11)
  1. GEMZAR [Suspect]
     Indication: BILE DUCT CANCER
     Dosage: 500 MG/M2
     Dates: start: 20040412, end: 20040824
  2. IRINOTECAN [Suspect]
     Indication: BILE DUCT CANCER
     Dosage: 50 MG/M2
     Dates: start: 20040412, end: 20040824
  3. PREVACID [Concomitant]
  4. REGLAN [Concomitant]
  5. LASIX [Concomitant]
  6. COUMADIN [Concomitant]
  7. EPOGEN [Concomitant]
  8. MIRTAZAPINE [Concomitant]
  9. MS CONTIN [Concomitant]
  10. CLONIDINE HCL [Concomitant]
  11. CELEBREX [Concomitant]

REACTIONS (6)
  - CELLULITIS [None]
  - CENTRAL LINE INFECTION [None]
  - KLEBSIELLA BACTERAEMIA [None]
  - PNEUMONIA KLEBSIELLA [None]
  - RENAL FAILURE ACUTE [None]
  - THROMBOCYTOPENIA [None]
